FAERS Safety Report 15423946 (Version 1)
Quarter: 2018Q3

REPORT INFORMATION
  Report Type: Spontaneous
  Country: US (occurrence: US)
  Receive Date: 20180914
  Receipt Date: 20180914
  Transmission Date: 20181010
  Serious: Yes (Other)
  Sender: FDA-Public Use
  Company Number: None

PATIENT
  Age: 59 Year
  Sex: Female
  Weight: 109.32 kg

DRUGS (1)
  1. AFREZZA [Suspect]
     Active Substance: INSULIN HUMAN
     Indication: DIABETES MELLITUS
     Dosage: ?          OTHER DOSE:24 UNITS;?
     Route: 048
     Dates: start: 20180529, end: 20180529

REACTIONS (2)
  - Arthralgia [None]
  - Photosensitivity reaction [None]

NARRATIVE: CASE EVENT DATE: 20180822
